FAERS Safety Report 21372022 (Version 2)
Quarter: 2022Q4

REPORT INFORMATION
  Report Type: Spontaneous
  Country: GB (occurrence: None)
  Receive Date: 20220923
  Receipt Date: 20221011
  Transmission Date: 20230113
  Serious: Yes (Death)
  Sender: FDA-Public Use
  Company Number: 2022A326119

PATIENT
  Sex: Female
  Weight: 46.3 kg

DRUGS (1)
  1. GEFITINIB [Suspect]
     Active Substance: GEFITINIB
     Route: 048

REACTIONS (1)
  - Death [Fatal]
